FAERS Safety Report 21968682 (Version 1)
Quarter: 2023Q1

REPORT INFORMATION
  Report Type: Report from Study
  Country: US (occurrence: None)
  Receive Date: 20230208
  Receipt Date: 20230208
  Transmission Date: 20230418
  Serious: Yes (Death)
  Sender: FDA-Public Use
  Company Number: 2023A032096

PATIENT
  Age: 23396 Day
  Weight: 80.7 kg

DRUGS (1)
  1. LYNPARZA [Suspect]
     Active Substance: OLAPARIB
     Indication: Bile duct cancer
     Route: 048
     Dates: start: 20220829

REACTIONS (1)
  - Death [Fatal]

NARRATIVE: CASE EVENT DATE: 20221231
